FAERS Safety Report 8997922 (Version 1)
Quarter: 2013Q1

REPORT INFORMATION
  Report Type: Spontaneous
  Country: FR (occurrence: FR)
  Receive Date: 20130104
  Receipt Date: 20130104
  Transmission Date: 20140127
  Serious: Yes (Hospitalization)
  Sender: FDA-Public Use
  Company Number: FR-PFIZER INC-2013002493

PATIENT
  Age: 72 Year
  Sex: Female

DRUGS (11)
  1. ATARAX [Suspect]
     Dosage: 25 MG, 2X/DAY
     Route: 048
     Dates: end: 201201
  2. ALDACTONE [Suspect]
     Indication: HYPERTENSION
     Dosage: 37.5 MG, DAILY
     Route: 048
     Dates: end: 201201
  3. HYDROCHLOROTHIAZIDE [Suspect]
     Indication: HYPERTENSION
     Dosage: 6.25 MG, DAILY
     Route: 048
     Dates: end: 201201
  4. LASILIX [Suspect]
     Indication: HYPERTENSION
     Dosage: 40 MG, DAILY
     Route: 048
     Dates: start: 201201
  5. LASILIX [Suspect]
     Dosage: 60 MG, DAILY
     Route: 048
     Dates: start: 20111216, end: 201201
  6. LASILIX [Suspect]
     Dosage: 80 MG, UNK
     Route: 048
     Dates: start: 20111213, end: 20111215
  7. LASILIX [Suspect]
     Dosage: 40 MG, 3X/DAY
     Route: 048
     Dates: start: 201112, end: 201112
  8. LASILIX [Suspect]
     Dosage: 165 MG, UNK
     Dates: start: 20111125, end: 201112
  9. LASILIX [Suspect]
     Dosage: 120+40 MG DAILY
     Dates: end: 20111124
  10. LASILIX [Suspect]
     Dosage: 205 MG, UNK
  11. LASILIX [Suspect]
     Dosage: 125 MG + 80 MG, DAILY

REACTIONS (2)
  - Hepatic encephalopathy [Not Recovered/Not Resolved]
  - Convulsion [Recovered/Resolved]
